FAERS Safety Report 13103008 (Version 1)
Quarter: 2017Q1

REPORT INFORMATION
  Report Type: Report from Study
  Country: US (occurrence: US)
  Receive Date: 20170110
  Receipt Date: 20170110
  Transmission Date: 20170428
  Serious: Yes (Other)
  Sender: FDA-Public Use
  Company Number: US-GILEAD-2016-0232916

PATIENT
  Age: 61 Year
  Sex: Female

DRUGS (1)
  1. LEDIPASVIR/SOFOSBUVIR [Suspect]
     Active Substance: LEDIPASVIR\SOFOSBUVIR
     Indication: CHRONIC HEPATITIS C
     Dosage: 1 DF, UNK
     Route: 048
     Dates: start: 20160826, end: 20161112

REACTIONS (11)
  - Insomnia [Unknown]
  - Decreased appetite [Unknown]
  - Chronic lymphocytic leukaemia [Unknown]
  - Intentional product use issue [Recovered/Resolved]
  - Pain [Unknown]
  - Influenza like illness [Unknown]
  - Asthenia [Unknown]
  - Headache [Unknown]
  - Malaise [Unknown]
  - Arthralgia [Unknown]
  - Fatigue [Unknown]
